FAERS Safety Report 20373121 (Version 1)
Quarter: 2022Q1

REPORT INFORMATION
  Report Type: Spontaneous
  Country: US (occurrence: US)
  Receive Date: 20220125
  Receipt Date: 20220125
  Transmission Date: 20220423
  Serious: No
  Sender: FDA-Public Use
  Company Number: US-ALEMBIC PHARMACUETICALS LIMITED-2021SCAL000661

PATIENT

DRUGS (1)
  1. LAMOTRIGINE [Suspect]
     Active Substance: LAMOTRIGINE
     Indication: Seizure
     Dosage: 6 DOSAGE FORM, 3 TABLETS IN THE MORNING AND 3 TABLETS AT NIGHT
     Route: 048
     Dates: start: 20211129, end: 20211211

REACTIONS (3)
  - Feeling hot [Recovered/Resolved]
  - Dizziness [Recovered/Resolved]
  - Headache [Recovered/Resolved]

NARRATIVE: CASE EVENT DATE: 20211201
